FAERS Safety Report 15901163 (Version 1)
Quarter: 2019Q1

REPORT INFORMATION
  Report Type: Spontaneous
  Country: US (occurrence: US)
  Receive Date: 20190201
  Receipt Date: 20190201
  Transmission Date: 20190417
  Serious: Yes (Death, Other)
  Sender: FDA-Public Use
  Company Number: None

PATIENT
  Age: 60 Year
  Sex: Male
  Weight: 67.95 kg

DRUGS (17)
  1. CARVEDILOL. [Concomitant]
     Active Substance: CARVEDILOL
  2. HUMALOG [Concomitant]
     Active Substance: INSULIN LISPRO
  3. KEPPRA [Concomitant]
     Active Substance: LEVETIRACETAM
  4. ONDANSETRON HCL [Concomitant]
     Active Substance: ONDANSETRON HYDROCHLORIDE
  5. TRAZODONE HYDROCHLORIDE. [Concomitant]
     Active Substance: TRAZODONE HYDROCHLORIDE
  6. VORICONAZOLE. [Concomitant]
     Active Substance: VORICONAZOLE
  7. ASPIRIN. [Concomitant]
     Active Substance: ASPIRIN
  8. DEXAMETHASONE. [Concomitant]
     Active Substance: DEXAMETHASONE
  9. FAMOTIDINE. [Concomitant]
     Active Substance: FAMOTIDINE
  10. GLEOSTINE [Suspect]
     Active Substance: LOMUSTINE
     Indication: BRAIN NEOPLASM MALIGNANT
     Dosage: ?          OTHER FREQUENCY:EVERY 6 WEEKS;?
     Route: 048
     Dates: start: 20181227, end: 20190201
  11. TORSEMIDE. [Concomitant]
     Active Substance: TORSEMIDE
  12. BISACODYL. [Concomitant]
     Active Substance: BISACODYL
  13. SENNA LAXATIVE [Concomitant]
     Active Substance: SENNOSIDES
  14. PROTONIX [Concomitant]
     Active Substance: PANTOPRAZOLE SODIUM
  15. ACETAMINOPHEN. [Concomitant]
     Active Substance: ACETAMINOPHEN
  16. CYCLOBENZAPRINE HCL [Concomitant]
     Active Substance: CYCLOBENZAPRINE HYDROCHLORIDE
  17. LISINOPRIL. [Concomitant]
     Active Substance: LISINOPRIL

REACTIONS (1)
  - Death [None]

NARRATIVE: CASE EVENT DATE: 20190201
